FAERS Safety Report 9177533 (Version 3)
Quarter: 2013Q1

REPORT INFORMATION
  Report Type: Spontaneous
  Country: BE (occurrence: BE)
  Receive Date: 20130321
  Receipt Date: 20130329
  Transmission Date: 20140127
  Serious: Yes (Death, Hospitalization)
  Sender: FDA-Public Use
  Company Number: BE-009507513-1303BEL008486

PATIENT
  Age: 62 Year
  Sex: Male

DRUGS (3)
  1. VICTRELIS [Suspect]
     Indication: HEPATITIS C
     Dosage: TOTAL DAILY DOSE 2400 MG
     Route: 048
     Dates: start: 201208
  2. REBETOL [Suspect]
     Indication: HEPATITIS C
     Dosage: TOTAL DAILY DOSE 1000 MG
     Route: 048
     Dates: start: 20120709
  3. PEGINTRON [Suspect]
     Indication: HEPATITIS C
     Dosage: 100 ML, UNK
     Dates: start: 20120709

REACTIONS (2)
  - Escherichia sepsis [Fatal]
  - Acidosis [Not Recovered/Not Resolved]
